FAERS Safety Report 14016760 (Version 2)
Quarter: 2018Q2

REPORT INFORMATION
  Report Type: Spontaneous
  Country: US (occurrence: US)
  Receive Date: 20170927
  Receipt Date: 20180409
  Transmission Date: 20180711
  Serious: Yes (Other)
  Sender: FDA-Public Use
  Company Number: US-NAPPMUNDI-USA-2017-0140879

PATIENT
  Sex: Male

DRUGS (3)
  1. MORPHINE SULFATE (SIMILAR TO NDA 19-516) [Suspect]
     Active Substance: MORPHINE SULFATE
     Indication: PAIN
     Dosage: UNK
     Route: 048
  2. ALCOHOL. [Suspect]
     Active Substance: ALCOHOL
     Indication: PRODUCT USED FOR UNKNOWN INDICATION
     Dosage: UNK
     Route: 048
  3. OXYCONTIN [Suspect]
     Active Substance: OXYCODONE HYDROCHLORIDE
     Indication: PAIN
     Dosage: UNK
     Route: 048

REACTIONS (13)
  - Drug detoxification [Recovered/Resolved]
  - Unevaluable event [Recovered/Resolved]
  - Influenza like illness [Unknown]
  - Muscle twitching [Unknown]
  - Drug tolerance [Recovered/Resolved]
  - Alcoholic [Recovered/Resolved]
  - Hyperhidrosis [Unknown]
  - Drug dependence [Recovered/Resolved]
  - Diarrhoea [Unknown]
  - Substance abuse [Recovered/Resolved]
  - Drug withdrawal syndrome [Unknown]
  - Pain [Unknown]
  - Vomiting [Unknown]
